FAERS Safety Report 7548087-1 (Version None)
Quarter: 2011Q2

REPORT INFORMATION
  Report Type: 
  Country: None (occurrence: None)
  Receive Date: 20110615
  Receipt Date: 20090126
  Transmission Date: 20111010
  Serious: Yes (Death, Other)
  Sender: FDA-Public Use
  Company Number: US-BAYER-200911841NA

PATIENT
  Age: 71 Year
  Sex: Female
  Weight: 71.655 kg

DRUGS (34)
  1. COREG [Concomitant]
  2. TRASYLOL [Suspect]
     Indication: CARDIAC PACEMAKER REVISION
     Dosage: 50 ML/HR INFUSION
     Route: 042
     Dates: start: 20050622, end: 20050622
  3. LOTENSIN [Concomitant]
     Indication: HYPERTENSION
  4. DIGOXIN [Concomitant]
     Dosage: 0.125 MG, UNK
  5. VASOPRESSIN [Concomitant]
     Dosage: UNK (TITRATED)
     Route: 042
     Dates: start: 20050622, end: 20050622
  6. DOBUTAMINE HYDROCHLORIDE [Concomitant]
     Dosage: UNK (TITRATED)
     Route: 042
     Dates: start: 20050622, end: 20050622
  7. CALCIUM CHLORIDE [Concomitant]
     Dosage: 100 MG, UNK
     Route: 042
     Dates: start: 20050622
  8. AMIODARONE HCL [Concomitant]
     Dosage: 0.5 MG/MIN
     Route: 042
  9. NATRECOR [Concomitant]
     Dosage: 0.1 MG/KG/MIN
     Route: 042
  10. VERSED [Concomitant]
     Dosage: 5 MG, UNK
     Route: 042
     Dates: start: 20050622
  11. PROTAMINE SULFATE [Concomitant]
     Dosage: 350 MG, UNK
     Route: 042
     Dates: start: 20050622
  12. LIDOCAINE [Concomitant]
     Dosage: 100 MG, UNK
     Route: 042
     Dates: start: 20050622, end: 20050622
  13. SUCCINYLCHOLINE CHLORIDE [Concomitant]
     Dosage: 140 MG, UNK
     Route: 042
     Dates: start: 20050622
  14. PLATELETS [Concomitant]
     Dosage: 2 U, UNK
     Route: 042
     Dates: start: 20050622, end: 20050622
  15. RED BLOOD CELLS [Concomitant]
     Dosage: 500 ML, UNK
     Route: 042
     Dates: start: 20050622, end: 20050622
  16. TRASYLOL [Suspect]
     Indication: MITRAL VALVE REPLACEMENT
     Dosage: UNK
     Route: 042
     Dates: start: 20050407
  17. NATRECOR [Concomitant]
     Dosage: UNK (TITRATED)
     Route: 042
     Dates: start: 20050622, end: 20050622
  18. TRACLEER [Concomitant]
     Indication: HYPERTENSION
  19. PROPOFOL [Concomitant]
     Dosage: 150 MG, UNK
     Route: 042
     Dates: start: 20050622, end: 20050622
  20. HEPARIN [Concomitant]
     Dosage: UNK
     Dates: start: 20050622
  21. INSULIN [Concomitant]
     Dosage: UNK
     Route: 042
     Dates: start: 20050622
  22. MANNITOL [Concomitant]
     Dosage: 25 G, UNK
     Route: 042
     Dates: start: 20050622
  23. FRESH FROZEN PLASMA [Concomitant]
     Dosage: 1 U, UNK
     Route: 042
     Dates: start: 20050622, end: 20050622
  24. TRASYLOL [Suspect]
     Indication: TRICUSPID VALVE REPLACEMENT
     Dosage: 1 ML, ONCE, INITIAL TEST DOSE
     Route: 042
     Dates: start: 20050622, end: 20050622
  25. TRASYLOL [Suspect]
     Indication: CARDIAC PACEMAKER REMOVAL
     Dosage: 200 ML LOADING DOSE
     Route: 042
     Dates: start: 20050622, end: 20050622
  26. NOVATEC [Concomitant]
     Indication: HYPERTENSION
     Dosage: UNK
  27. VANCOMYCIN [Concomitant]
     Indication: PREMEDICATION
     Dosage: 1 G, UNK
     Route: 042
  28. FENTANYL [Concomitant]
     Dosage: 500 MCG
     Route: 042
     Dates: start: 20050622
  29. PEPCID [Concomitant]
     Indication: PREMEDICATION
     Dosage: 20 MG, UNK
     Route: 048
  30. LASIX [Concomitant]
     Indication: FLUID RETENTION
     Dosage: 80 MG, BID
     Dates: start: 20030101
  31. ADVIL LIQUI-GELS [Concomitant]
  32. METOPROLOL [Concomitant]
     Dosage: 25 MG, QD
  33. SOLU-MEDROL [Concomitant]
     Dosage: 1 G, UNK
     Route: 042
  34. GLYBURIDE [Concomitant]
     Dosage: UNK UNK, TID

REACTIONS (12)
  - UNEVALUABLE EVENT [None]
  - FEAR [None]
  - PAIN [None]
  - DEATH [None]
  - RENAL FAILURE [None]
  - RENAL IMPAIRMENT [None]
  - RENAL INJURY [None]
  - ANXIETY [None]
  - ANHEDONIA [None]
  - INJURY [None]
  - EMOTIONAL DISTRESS [None]
  - STRESS [None]
